FAERS Safety Report 17989012 (Version 1)
Quarter: 2020Q3

REPORT INFORMATION
  Report Type: Spontaneous
  Country: US (occurrence: US)
  Receive Date: 20200707
  Receipt Date: 20200707
  Transmission Date: 20201103
  Serious: No
  Sender: FDA-Public Use
  Company Number: None

PATIENT
  Age: 53 Year
  Sex: Male
  Weight: 85.5 kg

DRUGS (11)
  1. HYDROCODONE?HOMATROPINE 5?1.5MG [Concomitant]
     Dates: start: 20200701
  2. INSULIN LISPRO 4 UNITS [Concomitant]
     Dates: start: 20200701
  3. INSULIN GLARGINE 6 UNITS [Concomitant]
     Dates: start: 20200701
  4. ALBUTEROL 2.5MG INH [Concomitant]
     Dates: start: 20200701
  5. REMDESIVIR. [Suspect]
     Active Substance: REMDESIVIR
     Indication: COVID-19
     Dosage: ?          OTHER FREQUENCY:ONCE;?
     Route: 041
     Dates: start: 20200702
  6. BENZONATATE 200MG [Concomitant]
     Active Substance: BENZONATATE
     Dates: start: 20200701
  7. BACTRIM DS [Concomitant]
     Active Substance: SULFAMETHOXAZOLE\TRIMETHOPRIM
     Dates: start: 20200701, end: 20200703
  8. DEXAMETHASONE 6MG IV [Concomitant]
     Dates: start: 20200702
  9. CEPHALEXIN 500MG [Concomitant]
     Active Substance: CEPHALEXIN
     Dates: start: 20200701, end: 20200703
  10. ACETAMINOPHEN 650MG [Concomitant]
     Dates: start: 20200701
  11. ENOXAPARIN 40MG [Concomitant]
     Active Substance: ENOXAPARIN
     Dates: start: 20200702

REACTIONS (2)
  - Nausea [None]
  - Vomiting [None]

NARRATIVE: CASE EVENT DATE: 20200702
